FAERS Safety Report 6371876-6 (Version None)
Quarter: 2009Q3

REPORT INFORMATION
  Report Type: 
  Country: None (occurrence: None)
  Receive Date: 20090923
  Receipt Date: 20090915
  Transmission Date: 20100115
  Serious: Yes (Hospitalization)
  Sender: FDA-Public Use
  Company Number: PHEH2009US11028

PATIENT
  Age: 63 Year
  Sex: Female
  Weight: 68.934 kg

DRUGS (1)
  1. RECLAST [Suspect]
     Indication: OSTEOPOROSIS
     Dosage: 5 MG, UNK
     Route: 042
     Dates: start: 20090909

REACTIONS (6)
  - HAEMOPTYSIS [None]
  - HEADACHE [None]
  - MYALGIA [None]
  - NAUSEA [None]
  - RESPIRATORY DISTRESS [None]
  - VOMITING [None]
